FAERS Safety Report 9003205 (Version 1)
Quarter: 2013Q1

REPORT INFORMATION
  Report Type: Spontaneous
  Country: CN (occurrence: CN)
  Receive Date: 20130108
  Receipt Date: 20130108
  Transmission Date: 20140127
  Serious: Yes (Other)
  Sender: FDA-Public Use
  Company Number: CN-BAYER-2013-001781

PATIENT
  Age: 80 Year
  Sex: Male
  Weight: 75 kg

DRUGS (2)
  1. AVELOX [Suspect]
     Indication: ANTIBIOTIC THERAPY
     Dosage: 0.4 G, QD
     Route: 041
     Dates: start: 20101014, end: 20101014
  2. SODIUM CHLORIDE INJECTION [Concomitant]

REACTIONS (1)
  - Angina pectoris [Recovered/Resolved]
